FAERS Safety Report 5353777-5 (Version None)
Quarter: 2007Q2

REPORT INFORMATION
  Report Type: 
  Country: None (occurrence: None)
  Receive Date: 20070608
  Receipt Date: 20070608
  Transmission Date: 20071010
  Serious: Yes (Death, Life-Threatening, Hospitalization)
  Sender: FDA-Public Use
  Company Number: None

PATIENT
  Age: 78 Year
  Sex: Female

DRUGS (3)
  1. WARFARIN SODIUM [Suspect]
     Indication: ATRIAL FIBRILLATION
     Dosage: 7.5 MG DAILY PO
     Route: 048
  2. ATENOLOL [Concomitant]
  3. RYTHMOL [Concomitant]

REACTIONS (2)
  - ABNORMAL BEHAVIOUR [None]
  - HAEMORRHAGE INTRACRANIAL [None]
